FAERS Safety Report 10066117 (Version 2)
Quarter: 2014Q2

REPORT INFORMATION
  Report Type: Spontaneous
  Country: US (occurrence: US)
  Receive Date: 20140408
  Receipt Date: 20140527
  Transmission Date: 20141212
  Serious: Yes (Other)
  Sender: FDA-Public Use
  Company Number: US-PFIZER INC-2014096962

PATIENT
  Age: 55 Year
  Sex: Female
  Weight: 68.93 kg

DRUGS (3)
  1. XELJANZ [Suspect]
     Indication: RHEUMATOID ARTHRITIS
     Dosage: 5 MG, 2X/DAY
     Route: 048
     Dates: start: 201401, end: 201403
  2. XELJANZ [Suspect]
     Dosage: 5 MG, 2X/DAY
     Route: 048
     Dates: start: 20140328
  3. PREDNISONE [Concomitant]
     Indication: RHEUMATOID ARTHRITIS
     Dosage: 15 MG (BY TAKING 3 TABLETS OF 5MG TOGETHER), 1X/DAY

REACTIONS (3)
  - Pneumonia [Unknown]
  - Hypoaesthesia [Unknown]
  - Bronchitis [Recovered/Resolved]
